FAERS Safety Report 6631863-7 (Version None)
Quarter: 2010Q1

REPORT INFORMATION
  Report Type: 
  Country: None (occurrence: None)
  Receive Date: 20100312
  Receipt Date: 20100303
  Transmission Date: 20100710
  Serious: Yes (Other)
  Sender: FDA-Public Use
  Company Number: US-SANOFI-AVENTIS-2010SA012886

PATIENT
  Age: 76 Year
  Sex: Male

DRUGS (7)
  1. PLAVIX [Suspect]
     Route: 048
     Dates: start: 20061201, end: 20100107
  2. PLAVIX [Suspect]
     Indication: CORONARY ARTERY OCCLUSION
     Route: 048
     Dates: start: 20061201, end: 20100107
  3. PLAVIX [Suspect]
     Route: 048
     Dates: start: 20100111
  4. PLAVIX [Suspect]
     Route: 048
     Dates: start: 20100111
  5. ASPIRIN [Suspect]
     Route: 048
     Dates: start: 20061201, end: 20100107
  6. ASPIRIN [Suspect]
     Indication: CORONARY ARTERY OCCLUSION
     Route: 048
     Dates: start: 20061201, end: 20100107
  7. PRILOSEC [Suspect]

REACTIONS (6)
  - CAROTID ARTERY OCCLUSION [None]
  - GASTROOESOPHAGITIS [None]
  - HAEMOGLOBIN DECREASED [None]
  - HAEMOLYTIC ANAEMIA [None]
  - IDIOPATHIC THROMBOCYTOPENIC PURPURA [None]
  - PLATELET COUNT DECREASED [None]
